FAERS Safety Report 5376252-0 (Version None)
Quarter: 2007Q3

REPORT INFORMATION
  Report Type: 
  Country: None (occurrence: None)
  Receive Date: 20070702
  Receipt Date: 20070620
  Transmission Date: 20080115
  Serious: Yes (Hospitalization)
  Sender: FDA-Public Use
  Company Number: JP-ROCHE-495220

PATIENT
  Age: 17 Month
  Sex: Male
  Weight: 11 kg

DRUGS (2)
  1. TAMIFLU [Suspect]
     Indication: INFLUENZA
     Dosage: FORM: DRY SYRUP.
     Route: 048
     Dates: start: 20070406, end: 20070407
  2. MEIACT [Concomitant]
     Dosage: FORM: FINE GRANULE. GIVEN IN THREE SPLIT DOSES.
     Route: 048

REACTIONS (1)
  - CONVULSION [None]
